FAERS Safety Report 9540022 (Version 1)
Quarter: 2013Q2

REPORT INFORMATION
  Report Type: Spontaneous
  Country: US (occurrence: None)
  Receive Date: 20130524
  Receipt Date: 20130524
  Transmission Date: 20140414
  Serious: Yes (Other)
  Sender: FDA-Public Use
  Company Number: PHEH2013US002878

PATIENT
  Age: 56 Year
  Sex: Female
  Weight: 43.1 kg

DRUGS (2)
  1. GILENYA [Suspect]
     Indication: MULTIPLE SCLEROSIS
     Route: 048
     Dates: start: 20110804, end: 20120515
  2. PROVIGIL (MODAFINIL) [Concomitant]

REACTIONS (3)
  - Weight decreased [None]
  - Decreased appetite [None]
  - Abdominal discomfort [None]
